FAERS Safety Report 10749602 (Version 1)
Quarter: 2015Q1

REPORT INFORMATION
  Report Type: Spontaneous
  Country: FR (occurrence: FR)
  Receive Date: 20150129
  Receipt Date: 20150129
  Transmission Date: 20150721
  Serious: Yes (Hospitalization)
  Sender: FDA-Public Use
  Company Number: FR-PFIZER INC-2015028876

PATIENT
  Age: 69 Year
  Sex: Male

DRUGS (6)
  1. OXALIPLATIN. [Suspect]
     Active Substance: OXALIPLATIN
     Dosage: 85 MG/M2
     Route: 042
     Dates: start: 20131209, end: 20140506
  2. FLUOROURACILE [Concomitant]
     Active Substance: FLUOROURACIL
     Dosage: UNK
     Dates: start: 201312
  3. VECTIBIX [Concomitant]
     Active Substance: PANITUMUMAB
     Dosage: UNK
  4. DOXYCYCLINE. [Concomitant]
     Active Substance: DOXYCYCLINE
     Dosage: 200 MG, DAILY
     Dates: start: 201401
  5. TAHOR [Suspect]
     Active Substance: ATORVASTATIN CALCIUM
     Dosage: 40 MG, 1X/DAY
     Route: 048
     Dates: end: 20140516
  6. FOLINIC ACID [Concomitant]
     Active Substance: LEUCOVORIN
     Dosage: UNK
     Dates: start: 201312

REACTIONS (3)
  - Interstitial lung disease [Recovered/Resolved]
  - Alveolitis [Recovered/Resolved]
  - Dyspnoea [Recovered/Resolved]

NARRATIVE: CASE EVENT DATE: 20140510
